FAERS Safety Report 21932650 (Version 2)
Quarter: 2023Q1

REPORT INFORMATION
  Report Type: Report from Study
  Country: GB (occurrence: GB)
  Receive Date: 20230131
  Receipt Date: 20230308
  Transmission Date: 20230417
  Serious: Yes (Other)
  Sender: FDA-Public Use
  Company Number: GB-002147023-NVSC2022GB219029

PATIENT
  Age: 12 Year
  Sex: Female

DRUGS (3)
  1. OMNITROPE [Suspect]
     Active Substance: SOMATROPIN
     Indication: Turner^s syndrome
     Dosage: 1.5 MG, QD, ROUTE AS DIRECTED
     Route: 058
     Dates: start: 20220718
  2. OMNITROPE [Suspect]
     Active Substance: SOMATROPIN
     Dosage: 1.4 MG, QD (AS DIRECTED)
     Route: 058
  3. OMNITROPE [Suspect]
     Active Substance: SOMATROPIN
     Dosage: 1.4 MG, QD (AS DIRECTED)
     Route: 058

REACTIONS (5)
  - Autism spectrum disorder [Unknown]
  - Anxiety [Unknown]
  - Mood swings [Recovering/Resolving]
  - Nervousness [Unknown]
  - Product dose omission issue [Unknown]
